FAERS Safety Report 4867905-9 (Version None)
Quarter: 2005Q4

REPORT INFORMATION
  Report Type: 
  Country: None (occurrence: None)
  Receive Date: 20051223
  Receipt Date: 20051215
  Transmission Date: 20060501
  Serious: Yes (Life-Threatening, Hospitalization)
  Sender: FDA-Public Use
  Company Number: USA-2005-0021642

PATIENT
  Age: 28 Year
  Sex: Female

DRUGS (2)
  1. CEFDITOREN PIVOXIL (SIMILAR TO NDA 21-222) (CEFDITOREN PIVOXIL) [Suspect]
     Indication: MUMPS
     Dosage: 300 MG, DAILY, ORAL
     Route: 048
     Dates: start: 20051006, end: 20051008
  2. LOXONIN (LOXOPROFEN SODIUM) [Suspect]
     Dosage: 180 MG, DAILY, ORAL
     Route: 048
     Dates: start: 20051006, end: 20051008

REACTIONS (5)
  - DYSPNOEA [None]
  - LARYNGEAL OEDEMA [None]
  - PAIN [None]
  - SALIVARY GLAND ENLARGEMENT [None]
  - SWELLING [None]
